FAERS Safety Report 9477830 (Version 1)
Quarter: 2013Q3

REPORT INFORMATION
  Report Type: Spontaneous
  Country: US (occurrence: None)
  Receive Date: 20130826
  Receipt Date: 20130826
  Transmission Date: 20140515
  Serious: Yes (Disabling)
  Sender: FDA-Public Use
  Company Number: None

PATIENT
  Age: 32 Year
  Sex: Female
  Weight: 65.77 kg

DRUGS (1)
  1. SAPHRIS [Suspect]
     Indication: BIPOLAR I DISORDER
     Dosage: 1 TABLET ONCE DAILY TAKEN UNDER THE TONGUE
     Dates: start: 20111215, end: 20130620

REACTIONS (2)
  - Tardive dyskinesia [None]
  - Oral pain [None]
